FAERS Safety Report 4792070-6 (Version None)
Quarter: 2005Q4

REPORT INFORMATION
  Report Type: 
  Country: None (occurrence: None)
  Receive Date: 20051007
  Receipt Date: 20050624
  Transmission Date: 20060501
  Serious: Yes (Hospitalization)
  Sender: FDA-Public Use
  Company Number: US-MERCK-0506USA03591

PATIENT
  Age: 54 Year
  Sex: Female
  Weight: 80 kg

DRUGS (31)
  1. CYCLOBENZAPRINE HCL [Concomitant]
     Route: 065
  2. BUSPIRONE HYDROCHLORIDE [Concomitant]
     Route: 065
  3. HYDROCODONE BITARTRATE [Concomitant]
     Route: 065
     Dates: start: 20020601, end: 20041201
  4. VIOXX [Suspect]
     Indication: OSTEOARTHRITIS
     Route: 048
     Dates: start: 20020401, end: 20030601
  5. VIOXX [Suspect]
     Route: 048
     Dates: start: 20020401, end: 20030601
  6. VIOXX [Suspect]
     Indication: FIBROMYALGIA
     Route: 048
     Dates: start: 20020401, end: 20030601
  7. VIOXX [Suspect]
     Route: 048
     Dates: start: 20020401, end: 20030601
  8. ALBUTEROL [Concomitant]
     Route: 055
  9. DARVOCET-N 100 [Concomitant]
     Route: 065
  10. CELEXA [Concomitant]
     Route: 065
     Dates: start: 20020601, end: 20040101
  11. PREMARIN [Concomitant]
     Route: 065
     Dates: start: 20020101, end: 20020601
  12. SINGULAIR [Concomitant]
     Route: 048
  13. ZANTAC [Concomitant]
     Route: 065
  14. LASIX [Concomitant]
     Route: 065
     Dates: start: 20001101, end: 20020301
  15. PSEUDOEPHEDRINE HYDROCHLORIDE [Concomitant]
     Route: 065
  16. NITROFURANTOIN [Concomitant]
     Route: 065
  17. ALLER [Concomitant]
     Route: 065
  18. ZITHROMAX [Concomitant]
     Route: 065
  19. METRONIDAZOLE [Concomitant]
     Route: 065
  20. AMANTADINE HYDROCHLORIDE [Concomitant]
     Route: 065
  21. ALLOPURINOL [Concomitant]
     Route: 065
  22. HYOSCYAMINE [Concomitant]
     Route: 065
  23. HYDROCHLOROTHIAZIDE [Concomitant]
     Route: 065
     Dates: start: 20020401, end: 20020501
  24. POTASSIUM CHLORIDE [Concomitant]
     Route: 065
  25. ZOCOR [Concomitant]
     Route: 065
     Dates: start: 20020101
  26. ESTRADIOL [Concomitant]
     Route: 065
     Dates: start: 20020601, end: 20030601
  27. ESTRADIOL [Concomitant]
     Route: 065
     Dates: start: 20001201, end: 20020101
  28. CEPHALEXIN [Concomitant]
     Route: 065
  29. ACYCLOVIR [Concomitant]
     Route: 065
  30. NEUROTON [Concomitant]
     Route: 065
  31. NASONEX [Concomitant]
     Route: 065

REACTIONS (18)
  - ANKLE FRACTURE [None]
  - ARTHRALGIA [None]
  - ARTHRITIS [None]
  - ASTHMA [None]
  - BACK PAIN [None]
  - BLOOD PRESSURE INCREASED [None]
  - BRONCHOSPASM [None]
  - CARPAL TUNNEL SYNDROME [None]
  - CHEST PAIN [None]
  - CHOLECYSTECTOMY [None]
  - DIVERTICULITIS [None]
  - MENISCUS LESION [None]
  - MITRAL VALVE INCOMPETENCE [None]
  - OEDEMA PERIPHERAL [None]
  - PULMONARY EMBOLISM [None]
  - SLEEP APNOEA SYNDROME [None]
  - SLEEP DISORDER [None]
  - SOMNOLENCE [None]
